FAERS Safety Report 18001808 (Version 1)
Quarter: 2020Q3

REPORT INFORMATION
  Report Type: Report from Study
  Country: CA (occurrence: CA)
  Receive Date: 20200709
  Receipt Date: 20200709
  Transmission Date: 20201103
  Serious: Yes (Other)
  Sender: FDA-Public Use
  Company Number: CA-ELI_LILLY_AND_COMPANY-CA202007002826

PATIENT
  Sex: Male

DRUGS (1)
  1. IXEKIZUMAB [Suspect]
     Active Substance: IXEKIZUMAB
     Indication: PSORIATIC ARTHROPATHY
     Dosage: 160 MG, MONTHLY (1/M)
     Route: 058
     Dates: start: 20190216

REACTIONS (6)
  - Pruritus [Unknown]
  - Psoriasis [Unknown]
  - Stress [Unknown]
  - Eczema [Unknown]
  - Burning sensation [Unknown]
  - Urticaria [Unknown]
